FAERS Safety Report 17817944 (Version 1)
Quarter: 2020Q2

REPORT INFORMATION
  Report Type: Report from Study
  Country: IN (occurrence: IN)
  Receive Date: 20200522
  Receipt Date: 20200522
  Transmission Date: 20200714
  Serious: Yes (Other)
  Sender: FDA-Public Use
  Company Number: NVSC2020IN126512

PATIENT
  Age: 57 Year
  Sex: Male
  Weight: 58 kg

DRUGS (1)
  1. GALVUS MET [Suspect]
     Active Substance: METFORMIN HYDROCHLORIDE\VILDAGLIPTIN
     Indication: DIABETES MELLITUS
     Dosage: UNK UNK, BID
     Route: 048

REACTIONS (4)
  - Hyperglycaemia [Not Recovered/Not Resolved]
  - Cough [Not Recovered/Not Resolved]
  - Blood glucose increased [Not Recovered/Not Resolved]
  - Malaise [Not Recovered/Not Resolved]
